FAERS Safety Report 17968178 (Version 1)
Quarter: 2020Q3

REPORT INFORMATION
  Report Type: Spontaneous
  Country: US (occurrence: US)
  Receive Date: 20200701
  Receipt Date: 20200701
  Transmission Date: 20201103
  Serious: No
  Sender: FDA-Public Use
  Company Number: US-TEVA-2020-US-1792597

PATIENT
  Age: 22 Year
  Sex: Female

DRUGS (7)
  1. VITAMIN D?400 10 MCG TABLET [Concomitant]
  2. FLUCONAZOLE 150 MG TABLET [Concomitant]
  3. CLARITIN 10 MG TABLET [Concomitant]
  4. MIRTAZAPINE 15 MG TABLET [Concomitant]
     Active Substance: MIRTAZAPINE
  5. DYMISTA 137?50 MCG [Concomitant]
     Dosage: SPRAY/PUMP
  6. KEPPRA 250 MG TABLET [Concomitant]
  7. AUSTEDO [Suspect]
     Active Substance: DEUTETRABENAZINE
     Indication: HUNTINGTON^S DISEASE
     Dosage: 24 MILLIGRAM DAILY;
     Route: 048

REACTIONS (5)
  - Dyskinesia [Unknown]
  - Rash [Unknown]
  - Walking aid user [Unknown]
  - Weight increased [Unknown]
  - Tremor [Unknown]

NARRATIVE: CASE EVENT DATE: 202006
